FAERS Safety Report 12040245 (Version 4)
Quarter: 2016Q1

REPORT INFORMATION
  Report Type: Report from Study
  Country: US (occurrence: US)
  Receive Date: 20160208
  Receipt Date: 20160218
  Transmission Date: 20160526
  Serious: Yes (Other)
  Sender: FDA-Public Use
  Company Number: US-UCBSA-2016004231

PATIENT
  Age: 30 Year
  Sex: Female

DRUGS (11)
  1. PRENATAL VITAMINS [Concomitant]
     Active Substance: VITAMINS
     Indication: PRODUCT USED FOR UNKNOWN INDICATION
     Dosage: UNK
  2. PREDNISONE. [Suspect]
     Active Substance: PREDNISONE
     Dosage: TAPERING
  3. PREDNISONE. [Suspect]
     Active Substance: PREDNISONE
     Dosage: 20MG
  4. FLAGYL [Suspect]
     Active Substance: METRONIDAZOLE\METRONIDAZOLE HYDROCHLORIDE
     Indication: GASTROINTESTINAL PERFORATION
     Dosage: UNK
  5. PREDNISONE. [Suspect]
     Active Substance: PREDNISONE
     Dosage: HIGHER DOSE TAPERING
  6. CERTOLIZUMAB PEGOL [Suspect]
     Active Substance: CERTOLIZUMAB PEGOL
     Dosage: UNKNOWN DOSE
  7. REMICADE [Concomitant]
     Active Substance: INFLIXIMAB
     Indication: PRODUCT USED FOR UNKNOWN INDICATION
     Dosage: UNK
  8. IMODIUM [Concomitant]
     Active Substance: LOPERAMIDE HYDROCHLORIDE
     Indication: PRODUCT USED FOR UNKNOWN INDICATION
     Dosage: UNK
  9. CERTOLIZUMAB PEGOL [Suspect]
     Active Substance: CERTOLIZUMAB PEGOL
     Indication: PRODUCT USED FOR UNKNOWN INDICATION
     Dosage: UNK
     Dates: start: 2014
  10. CIPRO [Suspect]
     Active Substance: CIPROFLOXACIN HYDROCHLORIDE
     Indication: GASTROINTESTINAL PERFORATION
     Dosage: UNK
  11. PREDNISONE. [Suspect]
     Active Substance: PREDNISONE
     Indication: PRODUCT USED FOR UNKNOWN INDICATION
     Dosage: UNK

REACTIONS (22)
  - Diarrhoea [Unknown]
  - Palpitations [Unknown]
  - Nervousness [Unknown]
  - Abdominal pain upper [Unknown]
  - Constipation [Unknown]
  - Unevaluable event [Unknown]
  - Pain [Unknown]
  - Sleep disorder [Unknown]
  - Exposure during pregnancy [Unknown]
  - Clostridium difficile infection [Unknown]
  - Frustration tolerance decreased [Unknown]
  - White blood cell count increased [Unknown]
  - Mental disorder [Unknown]
  - Fistula [Unknown]
  - C-reactive protein increased [Unknown]
  - Crohn^s disease [Unknown]
  - Breast feeding [Unknown]
  - Candida infection [Unknown]
  - Gastrointestinal perforation [Unknown]
  - Dizziness [Unknown]
  - Fatigue [Unknown]
  - Depressed mood [Unknown]

NARRATIVE: CASE EVENT DATE: 2014
